FAERS Safety Report 5750453-1 (Version None)
Quarter: 2008Q2

REPORT INFORMATION
  Report Type: 
  Country: None (occurrence: None)
  Receive Date: 20080528
  Receipt Date: 20071119
  Transmission Date: 20081010
  Serious: No
  Sender: FDA-Public Use
  Company Number: US-KINGPHARMUSA00001-K200701496

PATIENT

DRUGS (2)
  1. AVINZA [Suspect]
     Dosage: 90 MG, UNK
  2. FENTANYL-100 [Suspect]
     Dosage: 100 UG/HR
     Route: 062

REACTIONS (1)
  - DRUG SCREEN FALSE POSITIVE [None]
